FAERS Safety Report 10822398 (Version 1)
Quarter: 2015Q1

REPORT INFORMATION
  Report Type: Spontaneous
  Country: US (occurrence: US)
  Receive Date: 20150218
  Receipt Date: 20150218
  Transmission Date: 20150721
  Serious: No
  Sender: FDA-Public Use
  Company Number: US-MYLANLABS-2014S1003884

PATIENT
  Sex: Male
  Weight: 72.58 kg

DRUGS (7)
  1. BENEFIX [Concomitant]
     Active Substance: COAGULATION FACTOR IX RECOMBINANT HUMAN\ISOPROPYL ALCOHOL
     Indication: HAEMOPHILIA B WITH ANTI FACTOR IX
     Dosage: UNK UNK,3XW
  2. HEPARIN LOCK FLUSH [Concomitant]
     Active Substance: HEPARIN SODIUM
     Dosage: UNK UNK,3XW
  3. CLONAZEPAM. [Concomitant]
     Active Substance: CLONAZEPAM
     Indication: PANIC ATTACK
     Dosage: UNK
  4. BENADRYL [Concomitant]
     Active Substance: DIPHENHYDRAMINE HYDROCHLORIDE
     Indication: ANAPHYLAXIS PROPHYLAXIS
     Dosage: UNK UNK,3XW
  5. EPIPEN [Suspect]
     Active Substance: EPINEPHRINE
     Dosage: .3 MG,PRN
     Route: 030
  6. FINASTERIDE. [Concomitant]
     Active Substance: FINASTERIDE
     Indication: RENAL DISORDER
     Dosage: UNK
  7. MIRTAZAPINE. [Concomitant]
     Active Substance: MIRTAZAPINE
     Indication: COMPLEX REGIONAL PAIN SYNDROME
     Dosage: UNK

REACTIONS (3)
  - Injection site bruising [Recovered/Resolved]
  - Gait disturbance [Not Recovered/Not Resolved]
  - Muscle haemorrhage [Recovered/Resolved]
